FAERS Safety Report 7460160-5 (Version None)
Quarter: 2011Q2

REPORT INFORMATION
  Report Type: 
  Country: None (occurrence: None)
  Receive Date: 20110505
  Receipt Date: 20110422
  Transmission Date: 20111010
  Serious: Yes (Other)
  Sender: FDA-Public Use
  Company Number: DE-JNJFOC-20110410584

PATIENT
  Sex: Male
  Weight: 62 kg

DRUGS (3)
  1. RISPERDAL [Suspect]
     Indication: PRODUCT USED FOR UNKNOWN INDICATION
     Route: 048
  2. RISPERDAL CONSTA [Suspect]
     Indication: PRODUCT USED FOR UNKNOWN INDICATION
     Route: 030
  3. RISPERDAL CONSTA [Suspect]
     Route: 030

REACTIONS (8)
  - FATIGUE [None]
  - DYSARTHRIA [None]
  - DYSPHAGIA [None]
  - GASTROINTESTINAL SOUNDS ABNORMAL [None]
  - MIOSIS [None]
  - INTENTIONAL OVERDOSE [None]
  - TACHYCARDIA [None]
  - DRUG ABUSE [None]
